FAERS Safety Report 22128770 (Version 7)
Quarter: 2024Q3

REPORT INFORMATION
  Report Type: Report from Study
  Country: DE (occurrence: DE)
  Receive Date: 20230323
  Receipt Date: 20240725
  Transmission Date: 20241016
  Serious: Yes (Hospitalization)
  Sender: ROCHE
  Company Number: DE-ROCHE-2738966

PATIENT
  Age: 58 Year
  Sex: Female

DRUGS (15)
  1. OCREVUS [Suspect]
     Active Substance: OCRELIZUMAB
     Indication: Relapsing-remitting multiple sclerosis
     Dosage: 600 MG 183 DAYS?600 MG 182 DAYS
     Route: 042
     Dates: start: 20201204, end: 20220617
  2. OCREVUS [Suspect]
     Active Substance: OCRELIZUMAB
     Dosage: 300 MG/KG
     Route: 042
     Dates: start: 20201218
  3. OCREVUS [Suspect]
     Active Substance: OCRELIZUMAB
     Dosage: 300 MG/KG
     Route: 042
     Dates: start: 20210617, end: 20210625
  4. OCREVUS [Suspect]
     Active Substance: OCRELIZUMAB
     Route: 042
     Dates: start: 20220617, end: 20220617
  5. GABAPENTIN [Concomitant]
     Active Substance: GABAPENTIN
  6. EDOXABAN TOSYLATE [Concomitant]
     Active Substance: EDOXABAN TOSYLATE
     Dosage: 0-0-1
  7. CANDESARTAN [Concomitant]
     Active Substance: CANDESARTAN
     Dosage: 1-0-1
  8. FLECAINIDE [Concomitant]
     Active Substance: FLECAINIDE
     Dosage: 1-0-1
  9. SYMBICORT [Concomitant]
     Active Substance: BUDESONIDE\FORMOTEROL FUMARATE DIHYDRATE
     Dosage: 160/4 (1-0-1)
  10. VITAMIN D3 [Concomitant]
     Active Substance: CHOLECALCIFEROL
     Dosage: 1-0-0
  11. METAMIZOLE [Concomitant]
     Active Substance: METAMIZOLE
     Dosage: FREQUENCY TEXT:AS REQUIRED
  12. ALBUTEROL [Concomitant]
     Active Substance: ALBUTEROL
     Dosage: FREQUENCY TEXT:AS REQUIRED
  13. NEBIVOLOL [Concomitant]
     Active Substance: NEBIVOLOL
     Dosage: 1-0-1
  14. NEBIVOLOL [Concomitant]
     Active Substance: NEBIVOLOL
     Dosage: 1-0-1
  15. ATORVASTATIN [Concomitant]
     Active Substance: ATORVASTATIN
     Dosage: 0-0-1

REACTIONS (30)
  - Fatigue [Recovered/Resolved]
  - Asthenia [Recovered/Resolved]
  - Headache [Recovered/Resolved]
  - Chest discomfort [Recovered/Resolved]
  - Pruritus [Recovered/Resolved]
  - Nail bed inflammation [Recovered/Resolved]
  - Ingrowing nail [Recovered/Resolved]
  - Acne pustular [Recovered/Resolved]
  - Blood cholesterol increased [Recovered/Resolved]
  - Arthropod bite [Unknown]
  - Rash erythematous [Recovered/Resolved]
  - Rash macular [Recovered/Resolved]
  - Abdominal pain upper [Recovered/Resolved]
  - Pain of skin [Recovered/Resolved]
  - Hypoaesthesia [Not Recovered/Not Resolved]
  - Eye pain [Recovering/Resolving]
  - Gait disturbance [Not Recovered/Not Resolved]
  - Depressed mood [Recovering/Resolving]
  - Muscle spasticity [Not Recovered/Not Resolved]
  - Dizziness [Recovered/Resolved]
  - Sensory disturbance [Not Recovered/Not Resolved]
  - Immunoglobulins decreased [Recovered/Resolved]
  - COVID-19 [Recovered/Resolved]
  - Pneumonia [Recovered/Resolved]
  - Arrhythmia [Recovered/Resolved]
  - Asthenia [Recovering/Resolving]
  - Dyspnoea [Recovered/Resolved]
  - Pyrexia [Unknown]
  - Muscle spasms [Not Recovered/Not Resolved]
  - Paraesthesia [Not Recovered/Not Resolved]

NARRATIVE: CASE EVENT DATE: 20201204
